FAERS Safety Report 21865795 (Version 1)
Quarter: 2023Q1

REPORT INFORMATION
  Report Type: Spontaneous
  Country: US (occurrence: US)
  Receive Date: 20230116
  Receipt Date: 20230116
  Transmission Date: 20230418
  Serious: No
  Sender: FDA-Public Use
  Company Number: US-SA-SAC20230112000970

PATIENT
  Sex: Male

DRUGS (12)
  1. DUPIXENT [Suspect]
     Active Substance: DUPILUMAB
     Indication: Asthma
     Dosage: 300 MG, QOW
     Route: 058
     Dates: start: 20220823
  2. ALBUTEROL [Concomitant]
     Active Substance: ALBUTEROL
  3. BUDESONIDE [Concomitant]
     Active Substance: BUDESONIDE
  4. IPRATROPIUM [Concomitant]
     Active Substance: IPRATROPIUM
  5. IRBESARTAN [Concomitant]
     Active Substance: IRBESARTAN
  6. KETOCONAZOLE [Concomitant]
     Active Substance: KETOCONAZOLE
  7. LISINOPRIL [Concomitant]
     Active Substance: LISINOPRIL
  8. MONTELUKAST [Concomitant]
     Active Substance: MONTELUKAST SODIUM
  9. NASACORT [Concomitant]
     Active Substance: TRIAMCINOLONE ACETONIDE
  10. OMEPRAZOLE [Concomitant]
     Active Substance: OMEPRAZOLE
  11. PREDNISONE [Concomitant]
     Active Substance: PREDNISONE
  12. KETOCONAZOLE [Concomitant]
     Active Substance: KETOCONAZOLE

REACTIONS (3)
  - Asthma [Unknown]
  - Dyspnoea [Unknown]
  - Therapeutic product effect decreased [Unknown]
